FAERS Safety Report 9564872 (Version 8)
Quarter: 2014Q1

REPORT INFORMATION
  Report Type: Report from Study
  Country: BE (occurrence: BE)
  Receive Date: 20130930
  Receipt Date: 20140327
  Transmission Date: 20141002
  Serious: Yes (Other)
  Sender: FDA-Public Use
  Company Number: PHHY2013BE047440

PATIENT
  Age: 29 Year
  Sex: Female
  Weight: 53 kg

DRUGS (4)
  1. FTY 720 [Suspect]
     Indication: RELAPSING-REMITTING MULTIPLE SCLEROSIS
     Dosage: 0.5 MG, QD
     Route: 048
     Dates: start: 20120926, end: 20130507
  2. FTY 720 [Suspect]
     Dosage: 0.5 MG, QD
     Route: 048
     Dates: start: 20140107
  3. YASMIN [Concomitant]
     Indication: CONTRACEPTION
     Route: 048
     Dates: start: 20130301
  4. OMNIBIONTA [Concomitant]
     Dates: start: 201305

REACTIONS (12)
  - Lymphopenia [Unknown]
  - Blood pressure decreased [Unknown]
  - Stress [Not Recovered/Not Resolved]
  - Pain in extremity [Not Recovered/Not Resolved]
  - Expanded disability status scale score increased [Unknown]
  - Diplopia [Not Recovered/Not Resolved]
  - Depressed mood [Unknown]
  - Visual impairment [Not Recovered/Not Resolved]
  - Neuralgia [Not Recovered/Not Resolved]
  - Uterine contractions abnormal [Recovered/Resolved]
  - Vomiting in pregnancy [Recovered/Resolved]
  - Maternal exposure during pregnancy [Unknown]
